FAERS Safety Report 15609850 (Version 2)
Quarter: 2018Q4

REPORT INFORMATION
  Report Type: Spontaneous
  Country: FR (occurrence: FR)
  Receive Date: 20181113
  Receipt Date: 20181229
  Transmission Date: 20190205
  Serious: Yes (Other)
  Sender: FDA-Public Use
  Company Number: FR-TEVA-2018-FR-974792

PATIENT
  Age: 87 Year
  Sex: Female

DRUGS (2)
  1. MEMANTINE BASE [Suspect]
     Active Substance: MEMANTINE
     Indication: DEMENTIA ALZHEIMER^S TYPE
     Route: 048
     Dates: start: 2016, end: 201807
  2. RIVASTIGMINE BASE [Suspect]
     Active Substance: RIVASTIGMINE
     Indication: DEMENTIA ALZHEIMER^S TYPE
     Route: 062
     Dates: start: 201511, end: 201807

REACTIONS (2)
  - Condition aggravated [Recovering/Resolving]
  - Product administration interrupted [Recovered/Resolved]

NARRATIVE: CASE EVENT DATE: 201807
